FAERS Safety Report 12727910 (Version 3)
Quarter: 2016Q4

REPORT INFORMATION
  Report Type: Spontaneous
  Country: JP (occurrence: JP)
  Receive Date: 20160909
  Receipt Date: 20161220
  Transmission Date: 20170207
  Serious: Yes (Hospitalization)
  Sender: FDA-Public Use
  Company Number: JP-ELI_LILLY_AND_COMPANY-JP201609001413

PATIENT
  Age: 81 Year
  Sex: Female
  Weight: 67 kg

DRUGS (7)
  1. CISPLATIN. [Concomitant]
     Active Substance: CISPLATIN
     Indication: GINGIVAL CANCER
     Dosage: 80 MG/M2, CYCLICAL
     Route: 013
  2. ERBITUX [Suspect]
     Active Substance: CETUXIMAB
     Dosage: 250 MG/M2, WEEKLY (1/W)
     Route: 042
     Dates: end: 20160113
  3. ERBITUX [Suspect]
     Active Substance: CETUXIMAB
     Indication: GINGIVAL CANCER
     Dosage: 400 MG/M2, WEEKLY (1/W)
     Route: 042
     Dates: start: 20150518, end: 20160113
  4. CISPLATIN. [Concomitant]
     Active Substance: CISPLATIN
     Dosage: 5MG/M2/DAILY
     Route: 013
     Dates: start: 20151112, end: 20160119
  5. DOCETAXEL. [Suspect]
     Active Substance: DOCETAXEL
     Indication: GINGIVAL CANCER
     Dosage: 10 MG/M2, QD
     Route: 013
     Dates: end: 20160118
  6. 5-FU                               /00098801/ [Concomitant]
     Active Substance: FLUOROURACIL
     Indication: GINGIVAL CANCER
     Dosage: 800 MG/M2, OTHER
     Route: 042
     Dates: start: 20150518, end: 20150731
  7. CISPLATIN. [Concomitant]
     Active Substance: CISPLATIN
     Dosage: 5 MG/M2, QD
     Route: 013
     Dates: start: 20150518, end: 20160119

REACTIONS (2)
  - Off label use [Unknown]
  - Wound complication [Recovered/Resolved with Sequelae]

NARRATIVE: CASE EVENT DATE: 20160420
